FAERS Safety Report 8802824 (Version 2)
Quarter: 2012Q4

REPORT INFORMATION
  Report Type: 
  Country: US (occurrence: US)
  Receive Date: 20120921
  Receipt Date: 20121127
  Transmission Date: 20130627
  Serious: Yes (Hospitalization, Other)
  Sender: FDA-Public Use
  Company Number: US-009507513-1202USA00844

PATIENT

DRUGS (4)
  1. FOSAMAX [Suspect]
     Indication: OSTEOPOROSIS
     Dosage: 10 mg, UNK
     Route: 048
     Dates: start: 19960502, end: 2001
  2. FOSAMAX [Suspect]
     Dosage: 70 mg, UNK
     Route: 048
     Dates: start: 2001, end: 200803
  3. FOSAMAX [Suspect]
     Indication: OSTEOPOROSIS
     Dosage: 70 mg, UNK
     Route: 048
     Dates: start: 200803, end: 20120621
  4. FOSAMAX D [Suspect]
     Dosage: 70mg/ 2800 IU qw
     Route: 048

REACTIONS (21)
  - Femur fracture [Unknown]
  - Femur fracture [Unknown]
  - Surgery [Unknown]
  - Femur fracture [Unknown]
  - Intramedullary rod insertion [Unknown]
  - Type 2 diabetes mellitus [Unknown]
  - Device issue [Unknown]
  - Blood pressure [Unknown]
  - Blood cholesterol increased [Unknown]
  - Hyperlipidaemia [Unknown]
  - Peripheral vascular disorder [Unknown]
  - Hypertension [Unknown]
  - Diabetic nephropathy [Unknown]
  - Microalbuminuria [Unknown]
  - Decubitus ulcer [Unknown]
  - Urinary tract infection [Unknown]
  - Spinal compression fracture [Unknown]
  - Compression fracture [Unknown]
  - Fall [Unknown]
  - Back pain [Unknown]
  - Constipation [Unknown]
